FAERS Safety Report 19935114 (Version 4)
Quarter: 2022Q1

REPORT INFORMATION
  Report Type: Spontaneous
  Country: GB (occurrence: GB)
  Receive Date: 20211008
  Receipt Date: 20220225
  Transmission Date: 20220424
  Serious: Yes (Disabling, Other)
  Sender: FDA-Public Use
  Company Number: GB-DSJP-DSE-2021-132312

PATIENT

DRUGS (2)
  1. IBUPROFEN [Suspect]
     Active Substance: IBUPROFEN
     Indication: Pain
     Dosage: 2 DF
     Route: 065
     Dates: start: 20210916
  2. DICLOFENAC SODIUM [Suspect]
     Active Substance: DICLOFENAC SODIUM
     Indication: Pain
     Dosage: 75 MG
     Route: 065
     Dates: start: 20210916

REACTIONS (10)
  - Vision blurred [Recovered/Resolved]
  - Blindness transient [Recovered/Resolved]
  - Swelling [Unknown]
  - Dry throat [Unknown]
  - Pruritus [Unknown]
  - Fatigue [Unknown]
  - Paraesthesia [Unknown]
  - Urticaria [Unknown]
  - Drug interaction [Unknown]
  - Drug ineffective [Unknown]

NARRATIVE: CASE EVENT DATE: 20210916
